FAERS Safety Report 15841526 (Version 1)
Quarter: 2019Q1

REPORT INFORMATION
  Report Type: Spontaneous
  Country: ES (occurrence: ES)
  Receive Date: 20190118
  Receipt Date: 20190118
  Transmission Date: 20190417
  Serious: Yes (Disabling)
  Sender: FDA-Public Use
  Company Number: ES-B.I. PHARMACEUTICALS,INC./RIDGEFIELD-2018-BI-049474

PATIENT
  Age: 65 Year
  Sex: Male

DRUGS (11)
  1. SINEMET [Suspect]
     Active Substance: CARBIDOPA\LEVODOPA
     Indication: PARKINSON^S DISEASE
     Dosage: STRENGTH: 25/100MG (IR)
     Route: 048
     Dates: start: 201804
  2. NARDIL [Suspect]
     Active Substance: PHENELZINE SULFATE
     Indication: DEPRESSION
     Dosage: DAILY DOSE: UNK
     Route: 065
     Dates: start: 201806
  3. SINEMET [Suspect]
     Active Substance: CARBIDOPA\LEVODOPA
     Indication: PARKINSON^S DISEASE
     Dosage: STRENGTH: 25/250MG (IR)
     Route: 048
     Dates: start: 201804
  4. TRANKIMAZIN [Concomitant]
     Active Substance: ALPRAZOLAM
     Indication: DEPRESSION
     Route: 065
  5. NARDIL [Suspect]
     Active Substance: PHENELZINE SULFATE
     Route: 065
     Dates: start: 1993, end: 2008
  6. NARDIL [Suspect]
     Active Substance: PHENELZINE SULFATE
     Dosage: DAILY DOSE: DECREASED TO A MINIMUM DOSE OF 15 (UNITS NOT PROVIDE)
     Route: 065
     Dates: start: 2018
  7. NARDYL [Concomitant]
     Indication: DEPRESSION
     Route: 065
  8. RIVOTRIL [Concomitant]
     Active Substance: CLONAZEPAM
     Indication: PRODUCT USED FOR UNKNOWN INDICATION
  9. SINEMET [Suspect]
     Active Substance: CARBIDOPA\LEVODOPA
     Indication: PARKINSON^S DISEASE
     Route: 048
  10. MIRAPEXIN [Suspect]
     Active Substance: PRAMIPEXOLE
     Indication: PARKINSON^S DISEASE
     Route: 065
  11. MOTILIUM [Concomitant]
     Active Substance: DOMPERIDONE
     Indication: OESOPHAGEAL DISORDER
     Route: 065

REACTIONS (22)
  - Ageusia [Not Recovered/Not Resolved]
  - Anxiety [Unknown]
  - Saliva altered [Unknown]
  - Asthenia [Unknown]
  - Sensation of foreign body [Unknown]
  - Dizziness [Not Recovered/Not Resolved]
  - Bruxism [Unknown]
  - Muscle rigidity [Unknown]
  - Dry mouth [Unknown]
  - Product prescribing error [Unknown]
  - Gastrointestinal disorder [Unknown]
  - Gait disturbance [Unknown]
  - Somnolence [Not Recovered/Not Resolved]
  - Agitation [Unknown]
  - Intentional product misuse [Unknown]
  - Back pain [Unknown]
  - Nervousness [Unknown]
  - Underdose [Unknown]
  - Hallucination [Unknown]
  - Sleep disorder [Not Recovered/Not Resolved]
  - Weight decreased [Unknown]
  - Tooth injury [Unknown]

NARRATIVE: CASE EVENT DATE: 2018
